FAERS Safety Report 6340052-5 (Version None)
Quarter: 2009Q3

REPORT INFORMATION
  Report Type: 
  Country: None (occurrence: None)
  Receive Date: 20090903
  Receipt Date: 20090831
  Transmission Date: 20100115
  Serious: Yes (Hospitalization)
  Sender: FDA-Public Use
  Company Number: US-GILEAD-2009-0024005

PATIENT
  Sex: Female
  Weight: 71.732 kg

DRUGS (13)
  1. LETAIRIS [Suspect]
     Indication: PULMONARY ARTERIAL HYPERTENSION
     Route: 048
     Dates: start: 20090805
  2. REVATIO [Concomitant]
  3. LASIX [Concomitant]
  4. POTASSIUM CHLORIDE [Concomitant]
  5. ASPIRIN [Concomitant]
  6. FOSAMAX [Concomitant]
  7. REGLAN [Concomitant]
  8. METOPROLOL [Concomitant]
  9. INDAPAMIDE [Concomitant]
  10. LIPITOR [Concomitant]
  11. LEVOTHROID [Concomitant]
  12. NEXIUM [Concomitant]
  13. CELEXA [Concomitant]

REACTIONS (4)
  - GENERALISED OEDEMA [None]
  - MOUTH HAEMORRHAGE [None]
  - ORAL MUCOSAL ERYTHEMA [None]
  - OROPHARYNGEAL PAIN [None]
